FAERS Safety Report 13017486 (Version 2)
Quarter: 2017Q1

REPORT INFORMATION
  Report Type: Spontaneous
  Country: IL (occurrence: IL)
  Receive Date: 20161212
  Receipt Date: 20170109
  Transmission Date: 20170428
  Serious: Yes (Other)
  Sender: FDA-Public Use
  Company Number: IL-TARO PHARMACEUTICALS USA.,INC-2016SUN00512

PATIENT

DRUGS (3)
  1. ETOPAN 500 MG TABLETS [Suspect]
     Active Substance: ETODOLAC
     Indication: INFLAMMATION
  2. NORMITEN [Concomitant]
     Active Substance: ATENOLOL
     Indication: PRODUCT USED FOR UNKNOWN INDICATION
     Dosage: 12.5 MG, UNK
     Route: 065
  3. ETOPAN 500 MG TABLETS [Suspect]
     Active Substance: ETODOLAC
     Indication: PAIN IN EXTREMITY
     Dosage: 500 MG, BID
     Route: 048
     Dates: start: 20161128, end: 20161129

REACTIONS (6)
  - Tremor [Recovering/Resolving]
  - Pyrexia [Recovering/Resolving]
  - Chills [Recovering/Resolving]
  - Paraesthesia [Recovering/Resolving]
  - Hypoaesthesia oral [Recovering/Resolving]
  - Therapeutic response decreased [Unknown]

NARRATIVE: CASE EVENT DATE: 20161128
